FAERS Safety Report 8759197 (Version 1)
Quarter: 2012Q4

REPORT INFORMATION
  Report Type: 
  Country: US (occurrence: US)
  Receive Date: 20120829
  Receipt Date: 20120829
  Transmission Date: 20130627
  Serious: Yes (Hospitalization)
  Sender: FDA-Public Use
  Company Number: US-BAYER-2012-089099

PATIENT
  Age: 33 Year
  Sex: Female

DRUGS (4)
  1. YAZ [Suspect]
  2. CLONAZEPAM [Concomitant]
  3. HYDROCODONE [Concomitant]
  4. ATIVAN [Concomitant]
     Indication: ANXIETY

REACTIONS (1)
  - Pulmonary embolism [None]
